FAERS Safety Report 9512126 (Version 1)
Quarter: 2013Q3

REPORT INFORMATION
  Report Type: Spontaneous
  Country: US (occurrence: US)
  Receive Date: 20130910
  Receipt Date: 20130910
  Transmission Date: 20140515
  Serious: Yes (Other)
  Sender: FDA-Public Use
  Company Number: US-JNJFOC-20130902381

PATIENT
  Sex: Female

DRUGS (5)
  1. CLADRIBINE [Suspect]
     Indication: LANGERHANS^ CELL HISTIOCYTOSIS
     Dosage: 1 WEEK APART
     Route: 042
  2. CLADRIBINE [Suspect]
     Indication: LANGERHANS^ CELL HISTIOCYTOSIS
     Dosage: FOR 5 CONSECUTIVE DAYS
     Route: 042
  3. CLADRIBINE [Suspect]
     Indication: LANGERHANS^ CELL HISTIOCYTOSIS
     Dosage: FOR 4 CONSECUTIVE DAYS
     Route: 042
  4. VINBLASTINE [Concomitant]
     Indication: LANGERHANS^ CELL HISTIOCYTOSIS
     Route: 065
  5. PREDNISONE [Concomitant]
     Indication: LANGERHANS^ CELL HISTIOCYTOSIS
     Route: 065

REACTIONS (5)
  - Pancytopenia [Unknown]
  - Renal impairment [Unknown]
  - Renal failure [Unknown]
  - Mycobacterium avium complex infection [Unknown]
  - Off label use [Unknown]
